FAERS Safety Report 10035994 (Version 2)
Quarter: 2014Q2

REPORT INFORMATION
  Report Type: Spontaneous
  Country: IT (occurrence: IT)
  Receive Date: 20140325
  Receipt Date: 20140411
  Transmission Date: 20141212
  Serious: Yes (Hospitalization, Other)
  Sender: FDA-Public Use
  Company Number: IT-BAYER-2014-042066

PATIENT
  Age: 26 Year
  Sex: Female

DRUGS (4)
  1. ACETYLSALICYLIC ACID({=100 MG) [Suspect]
     Indication: ANTIPHOSPHOLIPID SYNDROME
     Dosage: 100 MG/DAY
     Route: 048
  2. NIFEDIPINE [Suspect]
     Indication: PRE-ECLAMPSIA
  3. ENOXAPARIN [Concomitant]
     Indication: ANTIPHOSPHOLIPID SYNDROME
     Dosage: 4000 IU/DAY
     Route: 058
  4. ENOXAPARIN [Concomitant]
     Indication: ANTIPHOSPHOLIPID SYNDROME

REACTIONS (7)
  - Exposure during pregnancy [None]
  - Pre-eclampsia [Recovered/Resolved]
  - HELLP syndrome [Recovered/Resolved]
  - Cerebral ischaemia [Recovering/Resolving]
  - General physical health deterioration [Recovering/Resolving]
  - Premature labour [None]
  - Low birth weight baby [None]
